FAERS Safety Report 24121551 (Version 2)
Quarter: 2024Q3

REPORT INFORMATION
  Report Type: Spontaneous
  Country: CA (occurrence: CA)
  Receive Date: 20240722
  Receipt Date: 20240725
  Transmission Date: 20241016
  Serious: Yes (Other)
  Sender: BRISTOL MYERS SQUIBB
  Company Number: CA-BRISTOL-MYERS SQUIBB COMPANY-2024-115714

PATIENT

DRUGS (9)
  1. NIVOLUMAB [Suspect]
     Active Substance: NIVOLUMAB
     Indication: Neoplasm malignant
     Route: 042
  2. IPILIMUMAB [Suspect]
     Active Substance: IPILIMUMAB
     Indication: Neoplasm malignant
  3. ATEZOLIZUMAB [Concomitant]
     Active Substance: ATEZOLIZUMAB
     Indication: Neoplasm malignant
  4. DURVALUMAB [Concomitant]
     Active Substance: DURVALUMAB
     Indication: Neoplasm malignant
  5. PEMBROLIZUMAB [Concomitant]
     Active Substance: PEMBROLIZUMAB
     Indication: Neoplasm malignant
  6. PROLIA [Concomitant]
     Active Substance: DENOSUMAB
     Indication: Osteoporosis
     Route: 058
  7. CEMIPLIMAB [Concomitant]
     Active Substance: CEMIPLIMAB
     Indication: Neoplasm malignant
  8. ROMOSOZUMAB [Concomitant]
     Active Substance: ROMOSOZUMAB
     Indication: Osteoporosis
  9. AVELUMAB [Concomitant]
     Active Substance: AVELUMAB
     Indication: Neoplasm malignant

REACTIONS (4)
  - Hip fracture [Unknown]
  - Humerus fracture [Unknown]
  - Spinal fracture [Unknown]
  - Wrist fracture [Unknown]
